FAERS Safety Report 9117725 (Version 1)
Quarter: 2013Q1

REPORT INFORMATION
  Report Type: Spontaneous
  Country: US (occurrence: US)
  Receive Date: 20130225
  Receipt Date: 20130225
  Transmission Date: 20140127
  Serious: No
  Sender: FDA-Public Use
  Company Number: US-009507513-1302USA010947

PATIENT
  Age: 65 Year
  Sex: Male

DRUGS (3)
  1. JANUVIA [Suspect]
     Indication: DIABETES MELLITUS
     Dosage: 100 MG, UNK
     Route: 048
     Dates: start: 201211, end: 20130214
  2. METFORMIN [Concomitant]
  3. HYDROCODONE [Concomitant]

REACTIONS (1)
  - Urticaria [Unknown]
